FAERS Safety Report 7680351-8 (Version None)
Quarter: 2011Q3

REPORT INFORMATION
  Report Type: 
  Country: None (occurrence: None)
  Receive Date: 20110812
  Receipt Date: 20110803
  Transmission Date: 20111222
  Serious: Yes (Hospitalization)
  Sender: FDA-Public Use
  Company Number: KR-GLAXOSMITHKLINE-B0734429A

PATIENT
  Sex: Male
  Weight: 80 kg

DRUGS (14)
  1. ZOMETA [Concomitant]
     Indication: BONE DISORDER
     Dosage: 4MG PER DAY
     Dates: start: 20110610, end: 20110610
  2. MELPHALAN HYDROCHLORIDE [Suspect]
     Indication: MULTIPLE MYELOMA
     Dates: start: 20100917
  3. PREDNISONE [Suspect]
     Indication: MULTIPLE MYELOMA
     Dates: start: 20100917
  4. MAGNESIUM OXIDE [Concomitant]
     Indication: CONSTIPATION
     Dosage: 1500MG THREE TIMES PER DAY
     Dates: start: 20110316
  5. FOLIC ACID [Concomitant]
     Indication: PROPHYLAXIS
     Dosage: 2MG TWICE PER DAY
     Route: 048
     Dates: start: 20100814
  6. GASMOTIN [Concomitant]
     Indication: PROPHYLAXIS
     Dosage: 15MG THREE TIMES PER DAY
     Route: 048
     Dates: start: 20101105
  7. REBAMIPIDE [Concomitant]
     Indication: PROPHYLAXIS
     Dosage: 300MG THREE TIMES PER DAY
     Route: 048
     Dates: start: 20101105
  8. VITAMIN TAB [Concomitant]
     Indication: PERIPHERAL SENSORY NEUROPATHY
     Dosage: 2CAP TWICE PER DAY
     Route: 048
     Dates: start: 20101028
  9. EFFEXOR [Concomitant]
     Indication: PROPHYLAXIS
     Dosage: 150MG PER DAY
     Route: 048
     Dates: start: 20110121
  10. ACETAMINOPHEN W/ CODEINE [Concomitant]
     Indication: ASTHENIA
     Dosage: 6CAP THREE TIMES PER DAY
     Dates: start: 20110426
  11. THALIDOMIDE [Suspect]
     Indication: MULTIPLE MYELOMA
     Route: 048
     Dates: start: 20100917
  12. ASPIRIN [Concomitant]
     Indication: THROMBOSIS PROPHYLAXIS
     Dosage: 100MG PER DAY
     Route: 048
     Dates: start: 20100917
  13. NEURONTIN [Concomitant]
     Indication: PERIPHERAL SENSORY NEUROPATHY
     Dosage: 900MG THREE TIMES PER DAY
     Dates: start: 20110316
  14. LASIX [Concomitant]
     Indication: OEDEMA PERIPHERAL
     Dosage: 40MG TWICE PER DAY
     Dates: start: 20110426

REACTIONS (1)
  - PNEUMONIA [None]
